FAERS Safety Report 20950549 (Version 1)
Quarter: 2022Q2

REPORT INFORMATION
  Report Type: Spontaneous
  Country: TT (occurrence: TT)
  Receive Date: 20220613
  Receipt Date: 20220613
  Transmission Date: 20220720
  Serious: Yes (Death, Other)
  Sender: FDA-Public Use
  Company Number: TT-BAYER-2022P004322

PATIENT
  Age: 37 Year
  Sex: Female

DRUGS (1)
  1. ULTRAVIST [Suspect]
     Active Substance: IOPROMIDE
     Indication: Computerised tomogram
     Dosage: 100 ML, ONCE
     Route: 042

REACTIONS (4)
  - Cardiac arrest [Fatal]
  - Generalised oedema [Fatal]
  - Hypervolaemia [Fatal]
  - Pericardial effusion [Fatal]
